FAERS Safety Report 9413425 (Version 1)
Quarter: 2013Q3

REPORT INFORMATION
  Report Type: Report from Study
  Country: US (occurrence: US)
  Receive Date: 20130722
  Receipt Date: 20130722
  Transmission Date: 20140515
  Serious: Yes (Other)
  Sender: FDA-Public Use
  Company Number: US-CELGENEUS-163-21660-13072049

PATIENT
  Sex: 0

DRUGS (3)
  1. ABRAXANE [Suspect]
     Indication: BREAST CANCER
     Route: 041
  2. CARBOPLATIN [Suspect]
     Indication: BREAST CANCER
     Route: 065
  3. TRASTUZUMAB [Suspect]
     Indication: BREAST CANCER
     Route: 065

REACTIONS (11)
  - Neurotoxicity [Unknown]
  - Thrombosis [Unknown]
  - Infection [Unknown]
  - Neutrophil count decreased [Unknown]
  - Dehydration [Unknown]
  - Anaemia [Unknown]
  - Febrile neutropenia [Unknown]
  - Vomiting [Unknown]
  - Diarrhoea [Unknown]
  - Ejection fraction decreased [Unknown]
  - Thrombocytopenia [Unknown]
